FAERS Safety Report 8024978-2 (Version None)
Quarter: 2012Q1

REPORT INFORMATION
  Report Type: 
  Country: None (occurrence: None)
  Receive Date: 20120105
  Receipt Date: 20111230
  Transmission Date: 20120608
  Serious: Yes (Hospitalization, Other)
  Sender: FDA-Public Use
  Company Number: US-JNJFOC-20090905137

PATIENT
  Sex: Female
  Weight: 72.2 kg

DRUGS (23)
  1. GOLIMUMAB [Suspect]
     Route: 058
     Dates: start: 20071016
  2. GOLIMUMAB [Suspect]
     Route: 058
     Dates: start: 20070529
  3. GOLIMUMAB [Suspect]
     Route: 058
     Dates: start: 20060822
  4. PREDNISONE TAB [Concomitant]
     Route: 048
     Dates: start: 20060506
  5. GOLIMUMAB [Suspect]
     Route: 058
     Dates: start: 20070206
  6. GOLIMUMAB [Suspect]
     Route: 058
     Dates: start: 20070109
  7. PLACEBO [Suspect]
     Route: 048
     Dates: start: 20070206, end: 20070227
  8. GOLIMUMAB [Suspect]
     Route: 058
     Dates: start: 20061017
  9. PLACEBO [Suspect]
     Route: 048
     Dates: start: 20061017, end: 20061212
  10. PLACEBO [Suspect]
     Route: 048
     Dates: start: 20060822, end: 20061010
  11. GOLIMUMAB [Suspect]
     Route: 058
     Dates: start: 20061212
  12. GOLIMUMAB [Suspect]
     Route: 058
     Dates: start: 20070306
  13. GOLIMUMAB [Suspect]
     Indication: RHEUMATOID ARTHRITIS
     Route: 058
     Dates: start: 20070821
  14. GOLIMUMAB [Suspect]
     Route: 058
     Dates: start: 20070724
  15. METHOTREXATE [Concomitant]
     Indication: RHEUMATOID ARTHRITIS
     Route: 048
     Dates: start: 20080722
  16. GOLIMUMAB [Suspect]
     Route: 058
     Dates: start: 20061114
  17. GOLIMUMAB [Suspect]
     Route: 058
     Dates: start: 20070626
  18. GOLIMUMAB [Suspect]
     Route: 058
     Dates: start: 20060919
  19. PLACEBO [Suspect]
     Indication: RHEUMATOID ARTHRITIS
     Route: 048
     Dates: start: 20070306, end: 20071106
  20. PLACEBO [Suspect]
     Route: 048
     Dates: start: 20061219, end: 20061226
  21. GOLIMUMAB [Suspect]
     Route: 058
     Dates: start: 20070918
  22. GOLIMUMAB [Suspect]
     Route: 058
     Dates: start: 20070501
  23. GOLIMUMAB [Suspect]
     Route: 058
     Dates: start: 20070403

REACTIONS (2)
  - BREAST CANCER [None]
  - BREAST CANCER FEMALE [None]
